FAERS Safety Report 7413184-8 (Version None)
Quarter: 2011Q2

REPORT INFORMATION
  Report Type: 
  Country: None (occurrence: None)
  Receive Date: 20110413
  Receipt Date: 20110407
  Transmission Date: 20111010
  Serious: Yes (Other)
  Sender: FDA-Public Use
  Company Number: DE-PFIZER INC-2011036215

PATIENT
  Age: 48 Year
  Sex: Female
  Weight: 78 kg

DRUGS (8)
  1. PERPHENAZINE [Suspect]
     Dosage: 4 MG, UNK
  2. AMITRIPTYLINE [Suspect]
     Dosage: 25 - 75 MG
  3. CITALOPRAM [Concomitant]
     Dosage: 40 MG
     Dates: end: 20110101
  4. SUMATRIPTAN SUCCINATE [Suspect]
     Indication: MIGRAINE
     Dosage: UNK
     Dates: start: 20110201
  5. PERPHENAZINE [Suspect]
     Dosage: 3 MG, 2X/DAY
  6. ZOLOFT [Suspect]
     Indication: DEPRESSION
     Dosage: 25 MG DAILY
     Dates: start: 20110101
  7. CITALOPRAM [Concomitant]
     Dosage: 20 MG
     Dates: start: 20110101, end: 20110101
  8. ZOLOFT [Suspect]
     Dosage: 50 MG DAILY
     Dates: start: 20110113, end: 20110212

REACTIONS (11)
  - YERSINIA INFECTION [None]
  - MYALGIA [None]
  - ADVERSE EVENT [None]
  - DIARRHOEA [None]
  - LEUKOCYTOSIS [None]
  - BLOOD COUNT ABNORMAL [None]
  - ARTHRALGIA [None]
  - JOINT SWELLING [None]
  - PLATELET COUNT INCREASED [None]
  - SEROTONIN SYNDROME [None]
  - HEPATIC ENZYME INCREASED [None]
